FAERS Safety Report 7648153-6 (Version None)
Quarter: 2011Q3

REPORT INFORMATION
  Report Type: 
  Country: None (occurrence: None)
  Receive Date: 20110801
  Receipt Date: 20110727
  Transmission Date: 20111222
  Serious: Yes (Other)
  Sender: FDA-Public Use
  Company Number: CZ-PFIZER INC-2011135322

PATIENT
  Sex: Male

DRUGS (5)
  1. SUTENT [Suspect]
     Indication: METASTATIC RENAL CELL CARCINOMA
     Dosage: 50 MG, 4 WEEKS ON/ 2 WEEKS OFF
  2. EBRANTIL [Concomitant]
  3. EUPHYLLIN [Concomitant]
  4. ENOXAPARIN SODIUM [Concomitant]
     Indication: THROMBOSIS
  5. BISOPROLOL FUMARATE AND HYDROCHLOROTHIAZIDE [Concomitant]

REACTIONS (5)
  - THROMBOCYTOPENIA [None]
  - MOUTH HAEMORRHAGE [None]
  - FATIGUE [None]
  - APPETITE DISORDER [None]
  - TOOTH DISORDER [None]
